FAERS Safety Report 25884800 (Version 3)
Quarter: 2025Q4

REPORT INFORMATION
  Report Type: Spontaneous
  Country: US (occurrence: US)
  Receive Date: 20251006
  Receipt Date: 20251029
  Transmission Date: 20260117
  Serious: No
  Sender: AMGEN
  Company Number: US-AMGEN-USASP2025189335

PATIENT
  Age: 49 Year
  Sex: Female

DRUGS (1)
  1. AMJEVITA [Suspect]
     Active Substance: ADALIMUMAB-ATTO
     Indication: Product used for unknown indication
     Dosage: UNK (40 MILLIGRAM/4 MILLILITERS)
     Route: 065

REACTIONS (3)
  - Device difficult to use [Unknown]
  - Colonoscopy [Unknown]
  - Injection site pain [Unknown]

NARRATIVE: CASE EVENT DATE: 20250922
